FAERS Safety Report 7726895-1 (Version None)
Quarter: 2011Q3

REPORT INFORMATION
  Report Type: 
  Country: None (occurrence: None)
  Receive Date: 20110902
  Receipt Date: 20110824
  Transmission Date: 20111222
  Serious: Yes (Disabling, Other)
  Sender: FDA-Public Use
  Company Number: US-MERCK-1008USA00571

PATIENT
  Age: 55 Year
  Sex: Female
  Weight: 57 kg

DRUGS (4)
  1. BONIVA [Suspect]
     Indication: OSTEOPOROSIS
     Route: 048
     Dates: start: 20070401, end: 20090801
  2. FLUTICASONE [Concomitant]
     Indication: HYPERSENSITIVITY
     Route: 065
     Dates: start: 20001001
  3. FOSAMAX [Suspect]
     Indication: OSTEOPOROSIS
     Route: 048
     Dates: start: 20001101, end: 20070301
  4. BUSPIRONE HYDROCHLORIDE [Concomitant]
     Indication: ANXIETY
     Route: 065
     Dates: start: 19900101

REACTIONS (45)
  - SOMNOLENCE [None]
  - EDENTULOUS [None]
  - GASTROOESOPHAGEAL REFLUX DISEASE [None]
  - TRIGEMINAL NEURALGIA [None]
  - SEASONAL ALLERGY [None]
  - BRONCHITIS [None]
  - GINGIVAL DISORDER [None]
  - IRRITABLE BOWEL SYNDROME [None]
  - CONVULSION [None]
  - ADHESION [None]
  - UPPER RESPIRATORY TRACT INFECTION [None]
  - NEPHROPATHY [None]
  - PARANASAL SINUS MUCOSAL HYPERTROPHY [None]
  - TRISMUS [None]
  - ABDOMINAL DISCOMFORT [None]
  - PEPTIC ULCER [None]
  - NERVE INJURY [None]
  - HEPATIC ENZYME INCREASED [None]
  - ADVERSE DRUG REACTION [None]
  - HAEMORRHOIDS [None]
  - LIMB INJURY [None]
  - TOOTH DISORDER [None]
  - UPPER-AIRWAY COUGH SYNDROME [None]
  - RHINITIS PERENNIAL [None]
  - DEPRESSION [None]
  - OSTEONECROSIS OF JAW [None]
  - FIBROCYSTIC BREAST DISEASE [None]
  - ASTHMA [None]
  - FALL [None]
  - SYNCOPE [None]
  - ORAL INFECTION [None]
  - CERVICAL SPINAL STENOSIS [None]
  - INTERVERTEBRAL DISC DEGENERATION [None]
  - BLOOD ALKALINE PHOSPHATASE INCREASED [None]
  - INSOMNIA [None]
  - GINGIVAL INFECTION [None]
  - GASTRITIS [None]
  - VITAMIN D DEFICIENCY [None]
  - CELLULITIS [None]
  - HIATUS HERNIA [None]
  - ORAL HERPES [None]
  - PULPITIS DENTAL [None]
  - NODULE [None]
  - DRUG HYPERSENSITIVITY [None]
  - FUNCTIONAL GASTROINTESTINAL DISORDER [None]
